FAERS Safety Report 12617477 (Version 1)
Quarter: 2016Q3

REPORT INFORMATION
  Report Type: Spontaneous
  Country: US (occurrence: None)
  Receive Date: 20160802
  Receipt Date: 20160802
  Transmission Date: 20161109
  Serious: Yes (Disabling, Other)
  Sender: FDA-Public Use
  Company Number: None

PATIENT
  Age: 25 Year
  Sex: Male
  Weight: 97.52 kg

DRUGS (5)
  1. CLONAZEPAM. [Concomitant]
     Active Substance: CLONAZEPAM
  2. SULFAMETHOXAZOLE-TMP DS [Suspect]
     Active Substance: SULFAMETHOXAZOLE\TRIMETHOPRIM
     Indication: PYREXIA
     Route: 048
     Dates: start: 20160729, end: 20160731
  3. ZYRTEC [Concomitant]
     Active Substance: CETIRIZINE HYDROCHLORIDE
  4. SULFAMETHOXAZOLE-TMP DS [Suspect]
     Active Substance: SULFAMETHOXAZOLE\TRIMETHOPRIM
     Indication: RESPIRATORY TRACT INFECTION
     Route: 048
     Dates: start: 20160729, end: 20160731
  5. METOPROLOL SUCC ER [Concomitant]
     Active Substance: METOPROLOL SUCCINATE

REACTIONS (17)
  - Urticaria [None]
  - Arthralgia [None]
  - Pruritus generalised [None]
  - Disorientation [None]
  - Pyrexia [None]
  - Abdominal pain [None]
  - Back pain [None]
  - Hypersensitivity [None]
  - Pain [None]
  - Eye swelling [None]
  - Vomiting [None]
  - Nasal pruritus [None]
  - Nausea [None]
  - Dizziness [None]
  - Pruritus [None]
  - Lip swelling [None]
  - Headache [None]

NARRATIVE: CASE EVENT DATE: 20160731
